FAERS Safety Report 8888488 (Version 1)
Quarter: 2012Q4

REPORT INFORMATION
  Report Type: Report from Study
  Country: DE (occurrence: DE)
  Receive Date: 20121106
  Receipt Date: 20121106
  Transmission Date: 20130627
  Serious: Yes (Hospitalization)
  Sender: FDA-Public Use
  Company Number: DE-ROCHE-1152498

PATIENT
  Age: 49 Year
  Sex: Female
  Weight: 51.5 kg

DRUGS (3)
  1. BEVACIZUMAB [Suspect]
     Indication: OVARIAN CANCER
     Dosage: Date of last dose prior to SAE: 25/Oct/2012
     Route: 042
     Dates: start: 20121025, end: 20121025
  2. PACLITAXEL [Suspect]
     Indication: OVARIAN CANCER
     Dosage: Date of last dose prior to SAE: 25/Oct/2012
     Route: 042
     Dates: start: 20121005, end: 20121025
  3. CARBOPLATIN [Suspect]
     Indication: OVARIAN CANCER
     Dosage: Date of last dose prior to SAE: 25/Oct/2012
     Route: 042
     Dates: start: 20121005

REACTIONS (1)
  - Enterobiasis [Not Recovered/Not Resolved]
